FAERS Safety Report 7575049-0 (Version None)
Quarter: 2011Q2

REPORT INFORMATION
  Report Type: 
  Country: None (occurrence: None)
  Receive Date: 20110627
  Receipt Date: 20110623
  Transmission Date: 20111010
  Serious: Yes (Death)
  Sender: FDA-Public Use
  Company Number: JP-SANOFI-AVENTIS-2011SA039885

PATIENT
  Age: 54 Year
  Sex: Female

DRUGS (1)
  1. OXALIPLATIN [Suspect]
     Route: 065

REACTIONS (3)
  - RENAL TUBULAR NECROSIS [None]
  - PNEUMONIA INFLUENZAL [None]
  - MULTI-ORGAN FAILURE [None]
